FAERS Safety Report 4435709-7 (Version None)
Quarter: 2004Q3

REPORT INFORMATION
  Report Type: 
  Country: None (occurrence: None)
  Receive Date: 20040726
  Receipt Date: 20040527
  Transmission Date: 20050211
  Serious: No
  Sender: FDA-Public Use
  Company Number: USA040465641

PATIENT
  Age: 65 Year
  Sex: Female

DRUGS (3)
  1. FORTEO [Suspect]
     Indication: OSTEOPOROSIS
     Dates: start: 20040422
  2. SODIUM CHLORIDE 0.9% [Concomitant]
  3. BLOOD PRESSURE MEDICATION [Concomitant]

REACTIONS (4)
  - HEART RATE DECREASED [None]
  - HYPOTENSION [None]
  - INJECTION SITE HAEMORRHAGE [None]
  - MEDICATION ERROR [None]
